FAERS Safety Report 12243810 (Version 1)
Quarter: 2016Q2

REPORT INFORMATION
  Report Type: Report from Study
  Country: CA (occurrence: CA)
  Receive Date: 20160406
  Receipt Date: 20160406
  Transmission Date: 20160815
  Serious: Yes (Hospitalization)
  Sender: FDA-Public Use
  Company Number: PHHY2016CA045017

PATIENT
  Age: 56 Year
  Sex: Male

DRUGS (2)
  1. SANDOSTATIN [Suspect]
     Active Substance: OCTREOTIDE ACETATE
     Indication: NEUROENDOCRINE TUMOUR
     Dosage: DAILY
     Route: 042
     Dates: start: 20150721, end: 20150722
  2. SANDOSTATIN [Suspect]
     Active Substance: OCTREOTIDE ACETATE
     Dosage: DAILY
     Route: 058
     Dates: start: 20150723, end: 20150725

REACTIONS (2)
  - Incorrect route of drug administration [Unknown]
  - Angina pectoris [Unknown]

NARRATIVE: CASE EVENT DATE: 20150721
